FAERS Safety Report 5833382-4 (Version None)
Quarter: 2008Q3

REPORT INFORMATION
  Report Type: 
  Country: None (occurrence: None)
  Receive Date: 20080804
  Receipt Date: 20080804
  Transmission Date: 20090109
  Serious: Yes (Life-Threatening, Hospitalization, Disabling, Other)
  Sender: FDA-Public Use
  Company Number: None

PATIENT
  Sex: Female
  Weight: 94.3482 kg

DRUGS (1)
  1. ABILIFY [Suspect]
     Dosage: 20MG ABILIFY NIGHTLY

REACTIONS (2)
  - CHEST PAIN [None]
  - GAIT DISTURBANCE [None]
